FAERS Safety Report 20604391 (Version 1)
Quarter: 2022Q1

REPORT INFORMATION
  Report Type: Spontaneous
  Country: US (occurrence: None)
  Receive Date: 20220316
  Receipt Date: 20220316
  Transmission Date: 20220423
  Serious: Yes (Other)
  Sender: FDA-Public Use
  Company Number: None

PATIENT
  Sex: Female

DRUGS (3)
  1. HUMIRA [Suspect]
     Active Substance: ADALIMUMAB
     Indication: Psoriatic arthropathy
     Dosage: OTHER QUANTITY : 40 MG/0.4ML;?FREQUENCY : WEEKLY;?
     Route: 058
  2. HUMIRA [Suspect]
     Active Substance: ADALIMUMAB
     Dosage: OTHER QUANTITY : 1 PEN (40MG TOTAL);?FREQUENCY : WEEKLY;?
     Route: 058
  3. ACTIGALL [Concomitant]
     Active Substance: URSODIOL

REACTIONS (3)
  - Rash [None]
  - Discomfort [None]
  - Loss of personal independence in daily activities [None]
